FAERS Safety Report 15921210 (Version 2)
Quarter: 2019Q1

REPORT INFORMATION
  Report Type: Spontaneous
  Country: IT (occurrence: IT)
  Receive Date: 20190205
  Receipt Date: 20190219
  Transmission Date: 20190417
  Serious: Yes (Death)
  Sender: FDA-Public Use
  Company Number: IT-ALSI-201900050

PATIENT
  Age: 61 Year
  Sex: Male

DRUGS (1)
  1. OXYGEN. [Suspect]
     Active Substance: OXYGEN
     Indication: PRODUCT USED FOR UNKNOWN INDICATION
     Dates: start: 20190125

REACTIONS (3)
  - Thermal burn [Fatal]
  - Intentional product misuse [Fatal]
  - Accident [Fatal]
